FAERS Safety Report 7505555-6 (Version None)
Quarter: 2011Q2

REPORT INFORMATION
  Report Type: 
  Country: None (occurrence: None)
  Receive Date: 20110526
  Receipt Date: 20110512
  Transmission Date: 20111010
  Serious: Yes (Hospitalization, Disabling, Other)
  Sender: FDA-Public Use
  Company Number: PHHY2011JP19517

PATIENT
  Sex: Male
  Weight: 43 kg

DRUGS (7)
  1. ZOLPIDEM [Concomitant]
     Dosage: 10 MG, UNK
     Route: 048
  2. MEVALOTIN [Concomitant]
     Dosage: 10 MG, UNK
     Route: 048
  3. URIEF [Concomitant]
     Dosage: 8 MG, UNK
     Route: 048
  4. DIOVAN HCT [Suspect]
     Indication: HYPERTENSION
     Dosage: 1 DF, UNK
     Route: 048
     Dates: end: 20110303
  5. NITOROL [Concomitant]
     Dosage: 40 MG, UNK
     Route: 048
  6. DEPAS [Concomitant]
     Dosage: 1 MG, UNK
     Route: 048
  7. BUFFERIN [Concomitant]
     Dosage: 81 MG, UNK
     Route: 048

REACTIONS (6)
  - C-REACTIVE PROTEIN INCREASED [None]
  - BLOOD CHLORIDE DECREASED [None]
  - BLOOD CREATINE PHOSPHOKINASE INCREASED [None]
  - BLOOD POTASSIUM DECREASED [None]
  - HYPONATRAEMIA [None]
  - DIZZINESS [None]
